FAERS Safety Report 6784041-5 (Version None)
Quarter: 2010Q2

REPORT INFORMATION
  Report Type: 
  Country: None (occurrence: None)
  Receive Date: 20100622
  Receipt Date: 20100608
  Transmission Date: 20101027
  Serious: Yes (Hospitalization, Other)
  Sender: FDA-Public Use
  Company Number: US-ELI_LILLY_AND_COMPANY-US201006004018

PATIENT
  Sex: Female

DRUGS (1)
  1. FORTEO [Suspect]
     Indication: OSTEOPOROSIS
     Dosage: 20 UG, DAILY (1/D)
     Dates: start: 20100401

REACTIONS (9)
  - AMNESIA [None]
  - CLAVICLE FRACTURE [None]
  - CONTUSION [None]
  - CONVULSION [None]
  - HOSPITALISATION [None]
  - LETHARGY [None]
  - PETIT MAL EPILEPSY [None]
  - STRESS [None]
  - UPPER LIMB FRACTURE [None]
